FAERS Safety Report 5198999-1 (Version None)
Quarter: 2007Q1

REPORT INFORMATION
  Report Type: 
  Country: None (occurrence: None)
  Receive Date: 20070104
  Receipt Date: 20061227
  Transmission Date: 20070707
  Serious: Yes (Other)
  Sender: FDA-Public Use
  Company Number: DEWYE960127DEC06

PATIENT
  Age: 50 Year
  Sex: Male

DRUGS (1)
  1. ENBREL [Suspect]
     Indication: SPONDYLITIS
     Dosage: UNKNOWN
     Route: 058

REACTIONS (1)
  - CEREBRAL INFARCTION [None]
